FAERS Safety Report 13946709 (Version 1)
Quarter: 2017Q3

REPORT INFORMATION
  Report Type: Not Available
  Country: US (occurrence: US)
  Receive Date: 20170907
  Receipt Date: 20170907
  Transmission Date: 20171128
  Serious: No
  Sender: FDA-Public Use
  Company Number: US-3M-2017-US-003135

PATIENT
  Age: 23 Year
  Sex: Female
  Weight: 72.58 kg

DRUGS (3)
  1. KOVANAZE [Suspect]
     Active Substance: OXYMETAZOLINE HYDROCHLORIDE\TETRACAINE HYDROCHLORIDE
     Dosage: 1 SPRAY ONCE IN LEFT NOSTRIL
     Route: 045
     Dates: start: 20170227, end: 20170227
  2. CHLORHEXIDINE GLUCONATE (NON-SPECIFIC) [Suspect]
     Active Substance: CHLORHEXIDINE GLUCONATE
     Dosage: TWICE DAILY
     Route: 048
     Dates: start: 20170304
  3. CLINDAMYCIN. [Suspect]
     Active Substance: CLINDAMYCIN
     Dosage: 300 MG EVERY 6 HOURS
     Dates: start: 20170304

REACTIONS (4)
  - Cold-stimulus headache [Unknown]
  - Retching [Unknown]
  - Rhinalgia [Unknown]
  - Insomnia [Unknown]

NARRATIVE: CASE EVENT DATE: 20170305
